FAERS Safety Report 8182118-3 (Version None)
Quarter: 2012Q1

REPORT INFORMATION
  Report Type: 
  Country: None (occurrence: None)
  Receive Date: 20120302
  Receipt Date: 20120226
  Transmission Date: 20120608
  Serious: Yes (Death)
  Sender: FDA-Public Use
  Company Number: AU-ALLERGAN-1202066US

PATIENT
  Age: 88 Year
  Sex: Male

DRUGS (6)
  1. RESTASIS [Suspect]
  2. RESTASIS [Suspect]
     Indication: PRODUCT USED FOR UNKNOWN INDICATION
     Dosage: 1 GTT, BID
     Route: 047
     Dates: start: 20110711, end: 20120123
  3. IRBESARTAN + HYDROCHLOROTHIAZIDE [Concomitant]
     Indication: HYPERTENSION
     Dosage: 150 MG, UNK
     Route: 048
  4. OXYCODONE HCL [Concomitant]
     Indication: ANALGESIC THERAPY
     Dosage: 5 MG, UNK
     Route: 048
  5. IRBESARTAN [Concomitant]
     Indication: HYPERTENSION
     Route: 048
  6. OXYCONTIN [Concomitant]
     Indication: ANALGESIC THERAPY
     Route: 048

REACTIONS (1)
  - DEATH [None]
